FAERS Safety Report 22521188 (Version 1)
Quarter: 2023Q2

REPORT INFORMATION
  Report Type: Spontaneous
  Country: FR (occurrence: FR)
  Receive Date: 20230605
  Receipt Date: 20230605
  Transmission Date: 20230721
  Serious: Yes (Other)
  Sender: FDA-Public Use
  Company Number: None

PATIENT
  Age: 88 Year
  Sex: Male

DRUGS (4)
  1. CLINDAMYCIN [Suspect]
     Active Substance: CLINDAMYCIN
     Indication: Osteitis
     Dosage: 600 MILLIGRAM, QD
     Route: 048
     Dates: start: 20230113, end: 20230116
  2. CLINDAMYCIN [Suspect]
     Active Substance: CLINDAMYCIN
     Dosage: 1200 MILLIGRAM, QD
     Route: 048
     Dates: start: 20221221, end: 20221223
  3. COLCHICINE [Suspect]
     Active Substance: COLCHICINE
     Indication: Gout
     Dosage: 1.5 MILLIGRAM, QD
     Route: 048
     Dates: start: 20230103, end: 20230115
  4. CLINDAMYCIN [Suspect]
     Active Substance: CLINDAMYCIN
     Indication: Osteitis
     Dosage: 1800 MILLIGRAM, QD
     Route: 042
     Dates: start: 20221230, end: 20230112

REACTIONS (1)
  - Toxic skin eruption [Recovered/Resolved]

NARRATIVE: CASE EVENT DATE: 20230113
